FAERS Safety Report 5162829-4 (Version None)
Quarter: 2006Q4

REPORT INFORMATION
  Report Type: 
  Country: None (occurrence: None)
  Receive Date: 20061201
  Receipt Date: 20001124
  Transmission Date: 20070319
  Serious: Yes (Hospitalization)
  Sender: FDA-Public Use
  Company Number: FR-GLAXOSMITHKLINE-B0093343A

PATIENT
  Age: 1 Day
  Sex: Male

DRUGS (4)
  1. ZIDOVUDINE [Suspect]
     Indication: ANTIVIRAL PROPHYLAXIS
     Route: 048
     Dates: start: 20000525, end: 20000601
  2. COMBIVIR [Suspect]
     Indication: HIV INFECTION
     Route: 048
     Dates: end: 20000525
  3. RETROVIR [Suspect]
     Indication: HIV INFECTION
     Route: 042
     Dates: start: 20000525, end: 20000525
  4. INDINIVIR SULFATE [Concomitant]
     Indication: HIV INFECTION

REACTIONS (3)
  - ANAEMIA [None]
  - DRUG EXPOSURE DURING PREGNANCY [None]
  - GLUCOSE-6-PHOSPHATE DEHYDROGENASE DEFICIENCY [None]
